FAERS Safety Report 5599851-X (Version None)
Quarter: 2008Q1

REPORT INFORMATION
  Report Type: 
  Country: None (occurrence: None)
  Receive Date: 20080117
  Receipt Date: 20080105
  Transmission Date: 20080703
  Serious: Yes (Hospitalization, Other)
  Sender: FDA-Public Use
  Company Number: ADE2008-0106

PATIENT
  Age: 58 Year
  Sex: Male
  Weight: 130 kg

DRUGS (13)
  1. CITALOPRAM HYDROBROMIDE [Suspect]
     Dosage: 40MG 1TAB - QD - PO
     Route: 048
     Dates: start: 20060101, end: 20071205
  2. TRAMADOL HCL [Suspect]
     Dosage: 100MG AS NEEDED - PO
     Route: 048
     Dates: start: 20071119, end: 20071205
  3. BENDROFLUMETHIAZIDE [Concomitant]
  4. CANDESARTAN [Concomitant]
  5. ETORICOXIB [Concomitant]
  6. FELODIPINE [Concomitant]
  7. FELODIPINE [Concomitant]
  8. FUROSEMIDE [Concomitant]
  9. MOXIFLOXACIN HCL [Concomitant]
  10. TAMSULOSIN HCL [Concomitant]
  11. THIAMINE [Concomitant]
  12. VITAMIN B COMPLEX (NORSK) [Concomitant]
  13. PARACETAMOL [Concomitant]

REACTIONS (5)
  - AGITATION [None]
  - CELLULITIS [None]
  - DIARRHOEA [None]
  - MUSCLE TWITCHING [None]
  - PAIN IN EXTREMITY [None]
